FAERS Safety Report 4463193-6 (Version None)
Quarter: 2004Q3

REPORT INFORMATION
  Report Type: 
  Country: None (occurrence: None)
  Receive Date: 20040930
  Receipt Date: 20040909
  Transmission Date: 20050211
  Serious: Yes (Death)
  Sender: FDA-Public Use
  Company Number: DE-ROCHE-380206

PATIENT
  Age: 53 Year
  Sex: Male

DRUGS (19)
  1. MYCOPHENOLATE MOFETIL [Suspect]
     Route: 042
     Dates: start: 20040714, end: 20040728
  2. TACROLIMUS [Suspect]
     Route: 042
     Dates: start: 20040714, end: 20040716
  3. TACROLIMUS [Suspect]
     Route: 042
     Dates: start: 20040717, end: 20040717
  4. TACROLIMUS [Suspect]
     Route: 048
     Dates: start: 20040717, end: 20040721
  5. TACROLIMUS [Suspect]
     Route: 048
     Dates: start: 20040721, end: 20040722
  6. TACROLIMUS [Suspect]
     Route: 048
     Dates: start: 20040723, end: 20040725
  7. TACROLIMUS [Suspect]
     Route: 048
     Dates: start: 20040725, end: 20040726
  8. TACROLIMUS [Suspect]
     Route: 048
     Dates: start: 20040726, end: 20040727
  9. TACROLIMUS [Suspect]
     Route: 048
     Dates: start: 20040727, end: 20040728
  10. METHYLPREDNISOLONE [Suspect]
     Route: 065
     Dates: start: 20040714, end: 20040714
  11. PREDNISOLONE [Suspect]
     Route: 065
     Dates: start: 20040715, end: 20040723
  12. CATECHOLAMINE NOS [Concomitant]
  13. NOREPINEPHRINE BITARTRATE [Concomitant]
  14. ANTIBIOTICS [Concomitant]
  15. MERONEM [Concomitant]
  16. CIPROBAY [Concomitant]
  17. VFEND [Concomitant]
  18. INSULIN [Concomitant]
  19. SUFENTANIL [Concomitant]

REACTIONS (15)
  - CARDIAC FAILURE [None]
  - GASTRIC PERFORATION [None]
  - GENERAL PHYSICAL HEALTH DETERIORATION [None]
  - HEPATIC FAILURE [None]
  - HYPERGLYCAEMIA [None]
  - LARGE INTESTINE PERFORATION [None]
  - MULTI-ORGAN FAILURE [None]
  - OEDEMA [None]
  - PANCREATITIS NECROTISING [None]
  - PERITONITIS [None]
  - PNEUMONIA ASPIRATION [None]
  - PROCEDURAL COMPLICATION [None]
  - RESPIRATORY FAILURE [None]
  - SEPSIS [None]
  - STRESS ULCER [None]
